FAERS Safety Report 15098457 (Version 1)
Quarter: 2018Q3

REPORT INFORMATION
  Report Type: Spontaneous
  Country: DE (occurrence: DE)
  Receive Date: 20180702
  Receipt Date: 20180702
  Transmission Date: 20181010
  Serious: Yes (Other)
  Sender: FDA-Public Use
  Company Number: DE-PFIZER INC-2018259773

PATIENT
  Age: 32 Year
  Sex: Female

DRUGS (1)
  1. DEPO?CLINOVIR [Suspect]
     Active Substance: MEDROXYPROGESTERONE ACETATE
     Dosage: 3?MONTH INJECTION

REACTIONS (1)
  - Epilepsy [Unknown]

NARRATIVE: CASE EVENT DATE: 20180129
